FAERS Safety Report 4411700-1 (Version None)
Quarter: 2004Q3

REPORT INFORMATION
  Report Type: 
  Country: None (occurrence: None)
  Receive Date: 20040727
  Receipt Date: 20040714
  Transmission Date: 20050211
  Serious: Yes (Life-Threatening, Hospitalization)
  Sender: FDA-Public Use
  Company Number: CZ-JNJFOC-20040703672

PATIENT
  Age: 52 Year
  Sex: Female

DRUGS (8)
  1. REMICADE [Suspect]
     Indication: RHEUMATOID ARTHRITIS
     Dosage: SEE IMAGE
     Route: 042
     Dates: start: 20040622, end: 20040622
  2. REMICADE [Suspect]
     Indication: RHEUMATOID ARTHRITIS
     Dosage: SEE IMAGE
     Route: 042
     Dates: start: 20040714, end: 20040714
  3. METHOTREXATE [Concomitant]
  4. MOVALIS (MELOXICAM) [Concomitant]
  5. AC. FOLICUM (FOLIC ACID) [Concomitant]
  6. CITALEC (CITALOPRAM) [Concomitant]
  7. SANDIMMUNE [Concomitant]
  8. MEDROL [Concomitant]

REACTIONS (1)
  - ANAPHYLACTIC REACTION [None]
